FAERS Safety Report 4885010-2 (Version None)
Quarter: 2006Q1

REPORT INFORMATION
  Report Type: 
  Country: None (occurrence: None)
  Receive Date: 20060119
  Receipt Date: 20050218
  Transmission Date: 20060701
  Serious: Yes (Hospitalization, Other)
  Sender: FDA-Public Use
  Company Number: US-MERCK-0502USA02999

PATIENT
  Age: 62 Year
  Sex: Male
  Weight: 112 kg

DRUGS (1)
  1. VIOXX [Suspect]
     Indication: BACK DISORDER
     Route: 048
     Dates: start: 19990101, end: 20040901

REACTIONS (5)
  - ARTHROPOD BITE [None]
  - BACK DISORDER [None]
  - INCISION SITE COMPLICATION [None]
  - LOCALISED INFECTION [None]
  - MYOCARDIAL INFARCTION [None]
